FAERS Safety Report 19082834 (Version 1)
Quarter: 2021Q2

REPORT INFORMATION
  Report Type: Report from Study
  Country: CN (occurrence: CN)
  Receive Date: 20210401
  Receipt Date: 20210401
  Transmission Date: 20210717
  Serious: Yes (Death)
  Sender: FDA-Public Use
  Company Number: CN-PFIZER INC-2021334441

PATIENT
  Age: 50 Year
  Sex: Male

DRUGS (8)
  1. TACROLIMUS. [Suspect]
     Active Substance: TACROLIMUS
     Indication: IMMUNOSUPPRESSANT DRUG THERAPY
     Dosage: UNK
  2. IMMUNOGLOBULIN HUMAN NORMAL [Suspect]
     Active Substance: HUMAN IMMUNOGLOBULIN G
     Indication: GRAFT VERSUS HOST DISEASE
     Dosage: UNK
     Route: 042
  3. ALCOHOL. [Concomitant]
     Active Substance: ALCOHOL
     Dosage: UNK
  4. METHYLPREDNISOLONE. [Suspect]
     Active Substance: METHYLPREDNISOLONE
     Indication: IMMUNOSUPPRESSANT DRUG THERAPY
     Dosage: 100 MG, 1X/DAY
  5. FILGRASTIM [Suspect]
     Active Substance: FILGRASTIM
     Indication: GRAFT VERSUS HOST DISEASE
     Dosage: 300 UG, 2X/DAY
  6. DEXAMETHASONE. [Suspect]
     Active Substance: DEXAMETHASONE
     Indication: RASH
     Dosage: UNK
  7. DACLIZUMAB [Suspect]
     Active Substance: DACLIZUMAB
     Indication: TRANSPLANTATION COMPLICATION
     Dosage: UNK (D 1 AND D 4)
  8. ARSENIC ACID [Concomitant]
     Indication: HEPATOCELLULAR CARCINOMA
     Dosage: 10 MG, 1X/DAY

REACTIONS (1)
  - Drug ineffective [Fatal]
